FAERS Safety Report 7206363-6 (Version None)
Quarter: 2011Q1

REPORT INFORMATION
  Report Type: 
  Country: None (occurrence: None)
  Receive Date: 20110103
  Receipt Date: 20101222
  Transmission Date: 20110831
  Serious: Yes (Other)
  Sender: FDA-Public Use
  Company Number: PHHY2010AU87915

PATIENT
  Sex: Female
  Weight: 65 kg

DRUGS (7)
  1. TAXOL [Concomitant]
     Route: 042
  2. ABRAXANE [Concomitant]
  3. FEMARA [Concomitant]
     Dosage: UNK
     Dates: start: 20101201
  4. ARIMIDEX [Concomitant]
     Dosage: UNK
     Route: 048
     Dates: start: 20100922
  5. ZOMETA [Suspect]
     Indication: OSTEOPOROSIS
     Dosage: 4 MG, EVERY 4 WEEKS
     Dates: start: 20001120
  6. GEMCITABINE [Concomitant]
     Dosage: UNK
     Route: 042
     Dates: start: 20101120
  7. AROMASIN [Concomitant]
     Dosage: UNK
     Route: 048
     Dates: start: 20100617

REACTIONS (3)
  - PAIN [None]
  - OSTEONECROSIS OF JAW [None]
  - BONE LESION [None]
